FAERS Safety Report 7592043-4 (Version None)
Quarter: 2011Q3

REPORT INFORMATION
  Report Type: 
  Country: None (occurrence: None)
  Receive Date: 20110705
  Receipt Date: 20110705
  Transmission Date: 20111222
  Serious: Yes (Hospitalization)
  Sender: FDA-Public Use
  Company Number: None

PATIENT
  Sex: Male
  Weight: 78.45 kg

DRUGS (4)
  1. IRINOTECAN HCL [Suspect]
     Dosage: 1700 MG
     Dates: end: 20110526
  2. BEVACIZUMAB (RHUMAB VEGF) [Suspect]
     Dosage: 1600 MG
  3. FLUOROURACIL [Suspect]
     Dosage: 26600 MG
     Dates: end: 20110526
  4. LEUCOVORIN CALCIUM [Suspect]
     Dosage: 3800 MG
     Dates: end: 20110526

REACTIONS (12)
  - HYPOTENSION [None]
  - DIARRHOEA [None]
  - RECTAL HAEMORRHAGE [None]
  - TOXICITY TO VARIOUS AGENTS [None]
  - RENAL TUBULAR NECROSIS [None]
  - EASTERN COOPERATIVE ONCOLOGY GROUP PERFORMANCE STATUS WORSENED [None]
  - PNEUMONIA [None]
  - DECREASED APPETITE [None]
  - NEOPLASM PROGRESSION [None]
  - GASTRIC POLYPS [None]
  - ASTHENIA [None]
  - WEIGHT DECREASED [None]
